FAERS Safety Report 10917013 (Version 2)
Quarter: 2015Q2

REPORT INFORMATION
  Report Type: Spontaneous
  Country: US (occurrence: US)
  Receive Date: 20150316
  Receipt Date: 20150524
  Transmission Date: 20150821
  Serious: Yes (Hospitalization)
  Sender: FDA-Public Use
  Company Number: US-JNJFOC-20150102559

PATIENT
  Sex: Male

DRUGS (4)
  1. SUTENT [Concomitant]
     Active Substance: SUNITINIB MALATE
     Route: 065
  2. ZYTIGA [Suspect]
     Active Substance: ABIRATERONE ACETATE
     Indication: PROSTATE CANCER
     Route: 048
     Dates: start: 20140507, end: 20140812
  3. DRONABINOL. [Concomitant]
     Active Substance: DRONABINOL
     Route: 065
  4. ZYTIGA [Suspect]
     Active Substance: ABIRATERONE ACETATE
     Indication: RENAL CANCER
     Route: 048
     Dates: start: 20140507, end: 20140812

REACTIONS (2)
  - Product use issue [Unknown]
  - Prostate cancer [Not Recovered/Not Resolved]

NARRATIVE: CASE EVENT DATE: 20140507
